FAERS Safety Report 7444603-9 (Version None)
Quarter: 2011Q2

REPORT INFORMATION
  Report Type: 
  Country: None (occurrence: None)
  Receive Date: 20110419
  Receipt Date: 20110407
  Transmission Date: 20111010
  Serious: Yes (Hospitalization)
  Sender: FDA-Public Use
  Company Number: 030726

PATIENT
  Age: 40 Year
  Sex: Female

DRUGS (2)
  1. KEPPRA [Suspect]
     Indication: PARTIAL SEIZURES
     Dosage: (ORAL)
     Route: 048
     Dates: start: 20101227, end: 20101229
  2. CYCLOSPORINE [Suspect]
     Indication: HISTIOCYTOSIS HAEMATOPHAGIC
     Dosage: (ORAL)
     Route: 048
     Dates: start: 20101223, end: 20101229

REACTIONS (2)
  - DRUG ERUPTION [None]
  - STATUS EPILEPTICUS [None]
